FAERS Safety Report 7505481-2 (Version None)
Quarter: 2011Q2

REPORT INFORMATION
  Report Type: 
  Country: None (occurrence: None)
  Receive Date: 20110519
  Receipt Date: 20110505
  Transmission Date: 20111010
  Serious: Yes (Hospitalization, Other)
  Sender: FDA-Public Use
  Company Number: 2011SP018222

PATIENT
  Age: 42 Year
  Sex: Female
  Weight: 89 kg

DRUGS (6)
  1. IMPLANON (ETONOGESTREL /01502301/) [Suspect]
  2. HYDROCHLOROTHIAZIDE [Suspect]
  3. ASPIRIN	 /00002701/ [Concomitant]
  4. ENALAPRIL MALEATE [Concomitant]
  5. METHYLDOPA [Concomitant]
  6. IMPLANON (ETONOGESTREL /01502301/) [Suspect]
     Indication: CONTRACEPTION
     Dosage: 68 MG; SBDE
     Route: 059
     Dates: start: 20100830, end: 20110505

REACTIONS (7)
  - DIPLOPIA [None]
  - MYOCARDIAL INFARCTION [None]
  - WEIGHT INCREASED [None]
  - DYSARTHRIA [None]
  - MYOCARDIAL ISCHAEMIA [None]
  - LEFT ATRIAL HYPERTROPHY [None]
  - ANGINA PECTORIS [None]
